FAERS Safety Report 20145852 (Version 1)
Quarter: 2021Q4

REPORT INFORMATION
  Report Type: Spontaneous
  Country: US (occurrence: US)
  Receive Date: 20211203
  Receipt Date: 20211203
  Transmission Date: 20220303
  Serious: No
  Sender: FDA-Public Use
  Company Number: US-NOVOPROD-862201

PATIENT
  Age: 46 Year
  Sex: Male

DRUGS (1)
  1. NOVOEIGHT [Suspect]
     Active Substance: ANTIHEMOPHILIC FACTOR, HUMAN RECOMBINANT
     Indication: Haemophilia A without inhibitors
     Dosage: 4,000 UNITS
     Route: 065
     Dates: start: 2017, end: 2020

REACTIONS (1)
  - Drug ineffective [Unknown]
